APPROVED DRUG PRODUCT: WELCHOL
Active Ingredient: COLESEVELAM HYDROCHLORIDE
Strength: 625MG
Dosage Form/Route: TABLET;ORAL
Application: N021176 | Product #001 | TE Code: AB
Applicant: COSETTE PHARMACEUTICALS INC
Approved: May 26, 2000 | RLD: Yes | RS: Yes | Type: RX